FAERS Safety Report 9320342 (Version 1)
Quarter: 2013Q2

REPORT INFORMATION
  Report Type: Spontaneous
  Country: US (occurrence: US)
  Receive Date: 20130530
  Receipt Date: 20130530
  Transmission Date: 20140414
  Serious: Yes (Other)
  Sender: FDA-Public Use
  Company Number: US-ELI_LILLY_AND_COMPANY-US201305007119

PATIENT
  Sex: Female

DRUGS (3)
  1. HUMALOG LISPRO [Suspect]
     Indication: TYPE 1 DIABETES MELLITUS
     Dosage: 30 U, TID
  2. METFORMIN [Concomitant]
     Dosage: 2000 MG, QD
  3. LANTUS [Concomitant]
     Dosage: 50 U, QD

REACTIONS (3)
  - Blindness [Unknown]
  - Retinal detachment [Unknown]
  - Macular degeneration [Unknown]
